FAERS Safety Report 7660380-0 (Version None)
Quarter: 2011Q3

REPORT INFORMATION
  Report Type: 
  Country: None (occurrence: None)
  Receive Date: 20110805
  Receipt Date: 20110721
  Transmission Date: 20111222
  Serious: Yes (Hospitalization)
  Sender: FDA-Public Use
  Company Number: ES-WATSON-2011-12050

PATIENT
  Age: 55 Year
  Sex: Male

DRUGS (1)
  1. OMEPRAZOLE [Suspect]
     Indication: HIATUS HERNIA
     Dosage: 20 MG, DAILY
     Route: 048

REACTIONS (7)
  - TREMOR [None]
  - DIARRHOEA [None]
  - HYPOMAGNESAEMIA [None]
  - PARESIS [None]
  - ELECTROCARDIOGRAM QT PROLONGED [None]
  - HYPOKALAEMIA [None]
  - HYPOCALCAEMIA [None]
